FAERS Safety Report 23728104 (Version 1)
Quarter: 2024Q2

REPORT INFORMATION
  Report Type: Spontaneous
  Country: US (occurrence: US)
  Receive Date: 20240410
  Receipt Date: 20240410
  Transmission Date: 20240715
  Serious: Yes (Hospitalization, Other)
  Sender: FDA-Public Use
  Company Number: US-ALEMBIC PHARMACUETICALS LIMITED-2024SCAL000385

PATIENT

DRUGS (3)
  1. FLUOROURACIL [Suspect]
     Active Substance: FLUOROURACIL
     Indication: Cholangiocarcinoma
     Dosage: UNK
     Route: 065
  2. LEUCOVORIN [Suspect]
     Active Substance: LEUCOVORIN\LEUCOVORIN CALCIUM
     Indication: Cholangiocarcinoma
     Dosage: UNK
     Route: 065
  3. IRINOTECAN HYDROCHLORIDE [Suspect]
     Active Substance: IRINOTECAN HYDROCHLORIDE
     Indication: Cholangiocarcinoma
     Dosage: UNK
     Route: 065

REACTIONS (13)
  - Cardiogenic shock [Unknown]
  - Blood lactic acid increased [Unknown]
  - Alanine aminotransferase increased [Unknown]
  - Aspartate aminotransferase increased [Unknown]
  - Troponin increased [Unknown]
  - Brain natriuretic peptide increased [Unknown]
  - Cardiac index decreased [Unknown]
  - Pulmonary arterial wedge pressure increased [Unknown]
  - Ejection fraction decreased [Recovering/Resolving]
  - Cardiotoxicity [Unknown]
  - Cardiomyopathy [Unknown]
  - Angina pectoris [Unknown]
  - Dyspnoea [Unknown]
